FAERS Safety Report 12467562 (Version 2)
Quarter: 2016Q2

REPORT INFORMATION
  Report Type: Spontaneous
  Country: US (occurrence: US)
  Receive Date: 20160615
  Receipt Date: 20160616
  Transmission Date: 20160815
  Serious: No
  Sender: FDA-Public Use
  Company Number: US-BEH-2016070236

PATIENT
  Age: 73 Year
  Sex: Male
  Weight: 115.19 kg

DRUGS (25)
  1. FLONASE [Concomitant]
     Active Substance: FLUTICASONE PROPIONATE
  2. LMX                                /00033401/ [Concomitant]
  3. COREG [Concomitant]
     Active Substance: CARVEDILOL
  4. COMBIVENT RESPIMAT [Concomitant]
     Active Substance: ALBUTEROL SULFATE\IPRATROPIUM BROMIDE
  5. ZEMAIRA [Suspect]
     Active Substance: .ALPHA.1-PROTEINASE INHIBITOR HUMAN
     Indication: ALPHA-1 ANTI-TRYPSIN DEFICIENCY
     Dosage: 60 MG/KG, QW
     Route: 042
  6. POTASSIUM CHLORIDE. [Concomitant]
     Active Substance: POTASSIUM CHLORIDE
  7. OXYGEN. [Concomitant]
     Active Substance: OXYGEN
  8. ARTIFICIAL TEARS                   /00445101/ [Concomitant]
  9. PREDNISONE. [Concomitant]
     Active Substance: PREDNISONE
  10. SYMBICORT [Concomitant]
     Active Substance: BUDESONIDE\FORMOTEROL FUMARATE DIHYDRATE
  11. THEOPHYLLINE [Concomitant]
     Active Substance: THEOPHYLLINE ANHYDROUS
  12. BYSTOLIC [Concomitant]
     Active Substance: NEBIVOLOL HYDROCHLORIDE
  13. COUMADIN [Concomitant]
     Active Substance: WARFARIN SODIUM
  14. PREDNISONE. [Concomitant]
     Active Substance: PREDNISONE
  15. EPIPEN [Concomitant]
     Active Substance: EPINEPHRINE
  16. SODIUM CHLORIDE. [Concomitant]
     Active Substance: SODIUM CHLORIDE
  17. SIMVASTATIN. [Concomitant]
     Active Substance: SIMVASTATIN
  18. BUSPIRONE [Concomitant]
     Active Substance: BUSPIRONE HYDROCHLORIDE
  19. SPIRIVA [Concomitant]
     Active Substance: TIOTROPIUM BROMIDE MONOHYDRATE
  20. AZITHROMYCIN ANHYDROUS. [Concomitant]
     Active Substance: AZITHROMYCIN ANHYDROUS
  21. ALBUTEROL SULFATE AND IPRATROPIUM BROMIDE [Concomitant]
  22. PANTOPRAZOLE [Concomitant]
     Active Substance: PANTOPRAZOLE SODIUM
  23. DIPHENHYDRAMINE. [Concomitant]
     Active Substance: DIPHENHYDRAMINE
  24. PAROXETINE. [Concomitant]
     Active Substance: PAROXETINE
  25. LEVOTHYROXINE. [Concomitant]
     Active Substance: LEVOTHYROXINE

REACTIONS (2)
  - Influenza [Unknown]
  - Nasopharyngitis [Unknown]

NARRATIVE: CASE EVENT DATE: 20160105
